FAERS Safety Report 15401096 (Version 1)
Quarter: 2018Q3

REPORT INFORMATION
  Report Type: Spontaneous
  Country: US (occurrence: US)
  Receive Date: 20180914
  Receipt Date: 20180914
  Transmission Date: 20181010
  Serious: Yes (Hospitalization, Other)
  Sender: FDA-Public Use
  Company Number: None

PATIENT
  Age: 61 Year
  Sex: Male
  Weight: 108.45 kg

DRUGS (21)
  1. DILTIAZEM. [Concomitant]
     Active Substance: DILTIAZEM
  2. MIRTAZAPINE. [Concomitant]
     Active Substance: MIRTAZAPINE
  3. AMLODIPINE [Concomitant]
     Active Substance: AMLODIPINE BESYLATE
  4. ATORVASTATIN [Concomitant]
     Active Substance: ATORVASTATIN
  5. COLCHICINE. [Concomitant]
     Active Substance: COLCHICINE
  6. NORCO [Concomitant]
     Active Substance: ACETAMINOPHEN\HYDROCODONE BITARTRATE
  7. ALLOPURINOL. [Concomitant]
     Active Substance: ALLOPURINOL
  8. ASPIRIN. [Concomitant]
     Active Substance: ASPIRIN
  9. METOLAZONE. [Concomitant]
     Active Substance: METOLAZONE
  10. TORSEMIDE. [Concomitant]
     Active Substance: TORSEMIDE
  11. VENTOLIN [Concomitant]
     Active Substance: ALBUTEROL SULFATE
  12. CAPECITABINE. [Suspect]
     Active Substance: CAPECITABINE
     Indication: RECTAL CANCER
     Route: 048
     Dates: start: 20180723
  13. ELIQUIS [Concomitant]
     Active Substance: APIXABAN
  14. GABAPENTIN. [Concomitant]
     Active Substance: GABAPENTIN
  15. PANTOPRAZOLE [Concomitant]
     Active Substance: PANTOPRAZOLE
  16. TRADJENTA [Concomitant]
     Active Substance: LINAGLIPTIN
  17. ULORIC [Concomitant]
     Active Substance: FEBUXOSTAT
  18. GLIPIZIDE. [Concomitant]
     Active Substance: GLIPIZIDE
  19. METOPROLOL. [Concomitant]
     Active Substance: METOPROLOL
  20. SOTALOL. [Concomitant]
     Active Substance: SOTALOL
  21. HYDROXYZINE [Concomitant]
     Active Substance: HYDROXYZINE HYDROCHLORIDE

REACTIONS (1)
  - Renal impairment [None]
